FAERS Safety Report 14243481 (Version 1)
Quarter: 2017Q4

REPORT INFORMATION
  Report Type: Spontaneous
  Country: US (occurrence: None)
  Receive Date: 20171130
  Receipt Date: 20171130
  Transmission Date: 20180321
  Serious: No
  Sender: FDA-Public Use
  Company Number: None

PATIENT
  Sex: Female
  Weight: 72.12 kg

DRUGS (1)
  1. FORTEO [Suspect]
     Active Substance: TERIPARATIDE
     Indication: OSTEOPOROSIS
     Route: 058
     Dates: start: 201512

REACTIONS (9)
  - Oral mucosal blistering [None]
  - Infective glossitis [None]
  - Glossodynia [None]
  - Lip swelling [None]
  - Feeding disorder [None]
  - Oral discomfort [None]
  - Tongue erythema [None]
  - Oropharyngeal pain [None]
  - Weight decreased [None]
